FAERS Safety Report 8525999-3 (Version None)
Quarter: 2012Q3

REPORT INFORMATION
  Report Type: 
  Country: None (occurrence: None)
  Receive Date: 20120720
  Receipt Date: 20120711
  Transmission Date: 20120928
  Serious: Yes (Hospitalization)
  Sender: FDA-Public Use
  Company Number: PHHO2012NL010287

PATIENT
  Sex: Male

DRUGS (6)
  1. ACETYLSALICYLIC ACID SRT [Suspect]
  2. GLIMEPIRIDE [Suspect]
     Indication: TYPE 2 DIABETES MELLITUS
     Dosage: 1 MG, UNK
     Dates: end: 20111103
  3. GLIMEPIRIDE [Suspect]
     Dosage: 2 MG, UNK
     Dates: start: 20111104
  4. ACENOCOUMAROL [Suspect]
  5. METFORMIN HYDROCHLORIDE [Suspect]
     Indication: TYPE 2 DIABETES MELLITUS
     Dosage: 2550 MG, UNK
     Dates: end: 20111103
  6. METFORMIN HYDROCHLORIDE [Suspect]
     Dosage: 3000 MG, UNK
     Dates: start: 20111104

REACTIONS (1)
  - EYE HAEMORRHAGE [None]
